FAERS Safety Report 5020916-5 (Version None)
Quarter: 2006Q2

REPORT INFORMATION
  Report Type: 
  Country: None (occurrence: None)
  Receive Date: 20060608
  Receipt Date: 20060524
  Transmission Date: 20061013
  Serious: Yes (Other)
  Sender: FDA-Public Use
  Company Number: PHEH2006US06818

PATIENT
  Age: 10 Year
  Sex: Female

DRUGS (5)
  1. ZELNORM [Suspect]
     Indication: CONSTIPATION
     Dosage: 6 MG, UNK
     Route: 048
  2. ZELNORM [Suspect]
     Dosage: 2 MG, QD
     Route: 048
  3. ZELNORM [Suspect]
     Dosage: 2 MG, QHS
     Route: 048
     Dates: end: 20051001
  4. STOOL SOFTENER [Concomitant]
     Dosage: UNK, PRN
  5. DULCOLAX [Concomitant]
     Dosage: UNK, PRN

REACTIONS (14)
  - ABDOMINAL PAIN [None]
  - ANAL ULCER [None]
  - BIOPSY COLON ABNORMAL [None]
  - BIOPSY MUCOSA ABNORMAL [None]
  - BIOPSY STOMACH ABNORMAL [None]
  - COLITIS [None]
  - CROHN'S DISEASE [None]
  - DUODENAL ULCER [None]
  - HAEMATEMESIS [None]
  - HEADACHE [None]
  - MUCOSAL INFLAMMATION [None]
  - RECTAL HAEMORRHAGE [None]
  - UPPER GASTROINTESTINAL HAEMORRHAGE [None]
  - VOMITING [None]
